FAERS Safety Report 4507724-6 (Version None)
Quarter: 2004Q4

REPORT INFORMATION
  Report Type: 
  Country: None (occurrence: None)
  Receive Date: 20041015
  Receipt Date: 20040120
  Transmission Date: 20050328
  Serious: Yes (Other)
  Sender: FDA-Public Use
  Company Number: 2004004022

PATIENT
  Age: 40 Year
  Sex: Male

DRUGS (4)
  1. NEURONTIN [Suspect]
     Indication: PSYCHOMOTOR HYPERACTIVITY
     Dosage: 2400 MG (800, TID), ORAL
     Route: 048
     Dates: start: 20030701
  2. CLONAZEPAM [Suspect]
     Indication: ILL-DEFINED DISORDER
     Dosage: ORAL
     Route: 048
  3. VALPROATE SODIUM [Concomitant]
  4. DOXEPIN HYDROCHLORIDE (DOXEPIN HYDROCHLORIDE) [Concomitant]

REACTIONS (8)
  - HALLUCINATION, AUDITORY [None]
  - INSOMNIA [None]
  - MEDICATION ERROR [None]
  - OVERDOSE [None]
  - PARANOIA [None]
  - PSYCHOMOTOR HYPERACTIVITY [None]
  - SUICIDAL IDEATION [None]
  - WEIGHT INCREASED [None]
